FAERS Safety Report 21359240 (Version 1)
Quarter: 2022Q3

REPORT INFORMATION
  Report Type: Spontaneous
  Country: US (occurrence: None)
  Receive Date: 20220920
  Receipt Date: 20220920
  Transmission Date: 20221027
  Serious: Yes (Other)
  Sender: FDA-Public Use
  Company Number: None

PATIENT
  Age: 54 Year
  Sex: Female
  Weight: 63.9 kg

DRUGS (13)
  1. XGEVA [Suspect]
     Active Substance: DENOSUMAB
     Indication: Osteoporosis
     Dosage: OTHER QUANTITY : 1 INJECTION(S);?OTHER FREQUENCY : MONTHLY;?
     Route: 058
  2. DARZALEX FASPRO [Concomitant]
     Active Substance: DARATUMUMAB\HYALURONIDASE-FIHJ
  3. REVLIMID [Concomitant]
     Active Substance: LENALIDOMIDE
  4. PREDNISONE [Concomitant]
     Active Substance: PREDNISONE
  5. ASPIRIN [Concomitant]
     Active Substance: ASPIRIN
  6. DOXYCYCLINE [Concomitant]
     Active Substance: DOXYCYCLINE
  7. CURCUMIN [Concomitant]
     Active Substance: CURCUMIN
  8. VITAMINS [Concomitant]
     Active Substance: VITAMINS
  9. Lutien [Concomitant]
  10. VITAMIN D [Concomitant]
     Active Substance: VITAMIN D NOS
  11. VITAMIN B12 [Concomitant]
     Active Substance: CYANOCOBALAMIN
  12. cal-mag [Concomitant]
  13. astragalus [Concomitant]

REACTIONS (1)
  - Osteonecrosis of jaw [None]

NARRATIVE: CASE EVENT DATE: 20211230
